FAERS Safety Report 7600815-2 (Version None)
Quarter: 2011Q3

REPORT INFORMATION
  Report Type: 
  Country: None (occurrence: None)
  Receive Date: 20110708
  Receipt Date: 20110708
  Transmission Date: 20111222
  Serious: Yes (Other)
  Sender: FDA-Public Use
  Company Number: None

PATIENT
  Age: 58 Year
  Sex: Female
  Weight: 72.5755 kg

DRUGS (2)
  1. METOPROLOL SUCCINATE [Suspect]
     Indication: PALPITATIONS
     Dosage: METOPROLOL SUCCINATE ER 25MG PO
     Route: 048
     Dates: start: 20110524, end: 20110608
  2. METOPROLOL SUCCINATE [Suspect]
     Indication: HYPERTENSION
     Dosage: METOPROLOL SUCCINATE ER 25MG PO
     Route: 048
     Dates: start: 20110524, end: 20110608

REACTIONS (3)
  - BLOOD PRESSURE DECREASED [None]
  - PRODUCT SUBSTITUTION ISSUE [None]
  - PALPITATIONS [None]
